FAERS Safety Report 4809306-5 (Version None)
Quarter: 2005Q4

REPORT INFORMATION
  Report Type: 
  Country: None (occurrence: None)
  Receive Date: 20051021
  Receipt Date: 20030717
  Transmission Date: 20060501
  Serious: No
  Sender: FDA-Public Use
  Company Number: USA030741781

PATIENT
  Sex: Female

DRUGS (1)
  1. ZYPREXA [Suspect]
     Dosage: 15 MG/DAY
     Dates: start: 20010101

REACTIONS (2)
  - BONE MARROW FAILURE [None]
  - RED BLOOD CELL ABNORMALITY [None]
